FAERS Safety Report 10885172 (Version 4)
Quarter: 2016Q4

REPORT INFORMATION
  Report Type: Spontaneous
  Country: US (occurrence: US)
  Receive Date: 20150304
  Receipt Date: 20161021
  Transmission Date: 20170206
  Serious: Yes (Hospitalization)
  Sender: FDA-Public Use
  Company Number: US-PFIZER INC-2015074021

PATIENT
  Age: 66 Year
  Sex: Female
  Weight: 67 kg

DRUGS (29)
  1. PROBIOTICS [Concomitant]
     Active Substance: PROBIOTICS NOS
     Dosage: 1 DF, DAILY  (10 BILLION CELL CAPSULE)
     Route: 048
  2. MIRTAZAPINE. [Concomitant]
     Active Substance: MIRTAZAPINE
     Dosage: 15 MG, 1X/DAY (AT BEDTIME)
     Route: 048
  3. ASPIRIN. [Concomitant]
     Active Substance: ASPIRIN
     Dosage: 81 MG, 1X/DAY
     Route: 048
  4. OMEPRAZOLE. [Concomitant]
     Active Substance: OMEPRAZOLE
     Dosage: 20 MG, 1X/DAY
     Route: 048
  5. OMEPRAZOLE. [Concomitant]
     Active Substance: OMEPRAZOLE
     Dosage: 20 MG, DAILY
     Route: 048
  6. RENVELA [Concomitant]
     Active Substance: SEVELAMER CARBONATE
     Dosage: 800 MG, 1X/DAY
     Route: 048
  7. BREO ELLIPTA [Concomitant]
     Active Substance: FLUTICASONE FUROATE\VILANTEROL TRIFENATATE
     Dosage: UNK, DAILY [FLUTICASONE FUROATE 200 MCG]/ [VILANTEROL 25 MCG] (1 PUFF EVERY DAY)
     Route: 055
  8. CALCITRIOL. [Concomitant]
     Active Substance: CALCITRIOL
     Dosage: 0.25 UG, DAILY
     Route: 048
  9. IRON PLUS VITAMIN C [Concomitant]
     Dosage: (65 MG IRON - 25MG TABLET) 125 MG, UNK
     Route: 048
  10. SERTRALINE [Concomitant]
     Active Substance: SERTRALINE HYDROCHLORIDE
     Dosage: 50 MG, (1X/DAY ONCE A DAY AS DIRECTED)
     Route: 048
  11. VITAMIN C [Concomitant]
     Active Substance: ASCORBIC ACID
     Dosage: 500 MG, DAILY
     Route: 048
  12. NEPHROCAPS /01801401/ [Concomitant]
     Dosage: 1 MG, 1X/DAY
     Route: 048
  13. LACTULOSE. [Concomitant]
     Active Substance: LACTULOSE
     Indication: BOWEL MOVEMENT IRREGULARITY
     Dosage: UNK UNK, EVERY 4 HRS (10GRAM/15ML ORAL SOLUTION,2 TABLESPOONFUL UNTIL 2 SOFT BOWEL MOVEMENT PER DAY)
     Route: 048
  14. PROAIR HFA [Concomitant]
     Active Substance: ALBUTEROL SULFATE
     Indication: WHEEZING
  15. CALCITRIOL. [Concomitant]
     Active Substance: CALCITRIOL
     Dosage: 0.5 MG, UNK
     Route: 048
     Dates: start: 20130115
  16. PROAIR HFA [Concomitant]
     Active Substance: ALBUTEROL SULFATE
     Indication: COUGH
     Dosage: UNK, AS NEEDED
     Route: 055
  17. ACETAMINOPHEN. [Concomitant]
     Active Substance: ACETAMINOPHEN
     Dosage: 650 MG, AS NEEDED (325MG TABLET; TAKE 2 TABLETS EVERY 6 HOURS )
     Route: 048
  18. AROMASIN [Suspect]
     Active Substance: EXEMESTANE
     Indication: BREAST CANCER
     Dosage: 25 MG, 1X/DAY
     Route: 048
     Dates: start: 20120921
  19. DOCUSATE SODIUM. [Concomitant]
     Active Substance: DOCUSATE SODIUM
     Dosage: 100 MG, 1X/DAY (1 CAPSULE ONCE A DAY PRN)
     Route: 048
  20. MAGNESIUM OXIDE. [Concomitant]
     Active Substance: MAGNESIUM OXIDE
     Dosage: 400 MG, ALTERNATE DAY
     Route: 048
  21. MAGNESIUM OXIDE. [Concomitant]
     Active Substance: MAGNESIUM OXIDE
     Dosage: UNK
  22. VITAMIN E [Concomitant]
     Active Substance: .ALPHA.-TOCOPHEROL
     Dosage: 1000 UMOL/L, DAILY
     Route: 048
  23. ASPIRIN. [Concomitant]
     Active Substance: ASPIRIN
     Dosage: 81 MG, DAILY
     Route: 048
  24. TRAMADOL. [Concomitant]
     Active Substance: TRAMADOL
     Indication: PAIN
     Dosage: 50 MG, AS NEEDED
  25. SIMVASTATIN. [Concomitant]
     Active Substance: SIMVASTATIN
     Dosage: 20 MG, DAILY
     Dates: start: 20130107
  26. DOCUSATE SODIUM. [Concomitant]
     Active Substance: DOCUSATE SODIUM
     Dosage: 100 MG, AS NEEDED (TAKE 1 CAPSULE EVERY DAY )
     Route: 048
  27. TRIAMCINOLONE ACETONIDE. [Concomitant]
     Active Substance: TRIAMCINOLONE ACETONIDE
     Indication: RASH
     Dosage: UNK, AS NEEDED (APPLY A SMALL AMOUNT TO AFFECTED AREA)
     Route: 061
  28. BENADRYL [Concomitant]
     Active Substance: DIPHENHYDRAMINE HYDROCHLORIDE
     Dosage: 50 MG, AS NEEDED (25 MG CAPSULE; TAKE 2 CAPSULES EVERY 4 HOURS )
     Route: 048
  29. ONDANSETRON [Concomitant]
     Active Substance: ONDANSETRON
     Dosage: 4 MG, AS NEEDED (DISSOLVE 1 TABLET ON THE TONGUE EVERY 6 HOURS)
     Route: 048

REACTIONS (1)
  - Malaise [Unknown]
